FAERS Safety Report 5156470-7 (Version None)
Quarter: 2006Q4

REPORT INFORMATION
  Report Type: 
  Country: None (occurrence: None)
  Receive Date: 20061113
  Receipt Date: 20061031
  Transmission Date: 20070319
  Serious: Yes (Other)
  Sender: FDA-Public Use
  Company Number: 2006133488

PATIENT
  Age: 68 Year
  Sex: Male
  Weight: 95.709 kg

DRUGS (8)
  1. VIAGRA [Suspect]
     Indication: ERECTILE DYSFUNCTION
     Dates: start: 20060101
  2. TAMSULOSIN (ATORVASTATIN) [Concomitant]
  3. CALCIUM (CALCIUM) [Concomitant]
  4. COLD-LIVER OIL (COD-LIVER OIL) [Concomitant]
  5. ALL OTHER THERAPEUTIC PRODUCTS (ALL OTHER THERAPEUTIC PRODUCTS) [Concomitant]
  6. MULTIVITAMIN [Concomitant]
  7. VITAMIN C (VITAMIN C) [Concomitant]
  8. VITAMIN E [Concomitant]

REACTIONS (3)
  - BLINDNESS TRANSIENT [None]
  - BLINDNESS UNILATERAL [None]
  - IMPAIRED DRIVING ABILITY [None]
